FAERS Safety Report 4755897-2 (Version None)
Quarter: 2005Q3

REPORT INFORMATION
  Report Type: 
  Country: None (occurrence: None)
  Receive Date: 20050830
  Receipt Date: 20050729
  Transmission Date: 20060218
  Serious: Yes (Other)
  Sender: FDA-Public Use
  Company Number: US-BRISTOL-MYERS SQUIBB COMPANY-13056494

PATIENT
  Age: 49 Year
  Sex: Male
  Weight: 89 kg

DRUGS (8)
  1. ERBITUX [Suspect]
     Indication: COLON CANCER METASTATIC
  2. BENADRYL [Concomitant]
     Indication: PREMEDICATION
     Route: 048
  3. DECADRON [Concomitant]
     Indication: PREMEDICATION
     Route: 048
  4. TYLENOL [Concomitant]
     Indication: PREMEDICATION
     Route: 048
  5. ANZEMET [Concomitant]
     Indication: PREMEDICATION
  6. IMODIUM [Concomitant]
  7. COMPAZINE [Concomitant]
  8. IBUPROFEN [Concomitant]

REACTIONS (1)
  - INFUSION RELATED REACTION [None]
